FAERS Safety Report 18944698 (Version 1)
Quarter: 2021Q1

REPORT INFORMATION
  Report Type: Spontaneous
  Country: US (occurrence: US)
  Receive Date: 20210226
  Receipt Date: 20210226
  Transmission Date: 20210420
  Serious: No
  Sender: FDA-Public Use
  Company Number: None

PATIENT
  Age: 78 Year
  Sex: Female
  Weight: 42 kg

DRUGS (2)
  1. BAMLANIVIMAB. [Suspect]
     Active Substance: BAMLANIVIMAB
     Indication: COVID-19
     Dosage: ?          OTHER FREQUENCY:ONE TIME ONLY;?
     Route: 042
     Dates: start: 20210224, end: 20210224
  2. 0.9% NACL [Concomitant]
     Active Substance: SODIUM CHLORIDE
     Dates: start: 20210224, end: 20210224

REACTIONS (4)
  - Pruritus [None]
  - Infusion site erythema [None]
  - Erythema [None]
  - Infusion site pruritus [None]

NARRATIVE: CASE EVENT DATE: 20210224
